FAERS Safety Report 24622803 (Version 2)
Quarter: 2024Q4

REPORT INFORMATION
  Report Type: Report from Study
  Country: CA (occurrence: CA)
  Receive Date: 20241115
  Receipt Date: 20241121
  Transmission Date: 20250114
  Serious: Yes (Hospitalization)
  Sender: SAMSUNG BIOEPIS
  Company Number: CA-SAMSUNG BIOEPIS-SB-2024-33842

PATIENT
  Age: 62 Year
  Sex: Female

DRUGS (1)
  1. RENFLEXIS [Suspect]
     Active Substance: INFLIXIMAB-ABDA
     Indication: Colitis ulcerative
     Dosage: 5MG/KG LOADING DOSE;
     Route: 042
     Dates: start: 20241105

REACTIONS (2)
  - Rectal haemorrhage [Not Recovered/Not Resolved]
  - Blood pressure abnormal [Not Recovered/Not Resolved]
